FAERS Safety Report 8804408 (Version 1)
Quarter: 2012Q4

REPORT INFORMATION
  Report Type: 
  Country: US (occurrence: US)
  Receive Date: 20120924
  Receipt Date: 20120924
  Transmission Date: 20130627
  Serious: Yes (Hospitalization)
  Sender: FDA-Public Use
  Company Number: US-NOVOPROD-360174

PATIENT
  Age: 60 Year
  Sex: Female
  Weight: 105.67 kg

DRUGS (1)
  1. VICTOZA [Suspect]
     Indication: TYPE 2 DIABETES MELLITUS
     Dosage: 1.2 mg, qd
     Route: 058
     Dates: start: 20120628, end: 201209

REACTIONS (2)
  - Cholecystitis acute [Recovered/Resolved]
  - Pancreatitis [Recovered/Resolved]
